FAERS Safety Report 7991078-7 (Version None)
Quarter: 2011Q4

REPORT INFORMATION
  Report Type: 
  Country: None (occurrence: None)
  Receive Date: 20111219
  Receipt Date: 20111213
  Transmission Date: 20120403
  Serious: No
  Sender: FDA-Public Use
  Company Number: US-BAYER-2011-120684

PATIENT
  Sex: Female

DRUGS (3)
  1. ALEVE (CAPLET) [Suspect]
     Indication: INFLAMMATION
  2. ALEVE (CAPLET) [Suspect]
     Indication: PAIN
     Dosage: UNK
     Route: 048
     Dates: start: 20111211, end: 20111213
  3. ALEVE (CAPLET) [Suspect]
     Indication: ERYTHEMA INFECTIOSUM

REACTIONS (1)
  - THERAPEUTIC RESPONSE DECREASED [None]
